FAERS Safety Report 13405198 (Version 1)
Quarter: 2017Q2

REPORT INFORMATION
  Report Type: Report from Study
  Country: US (occurrence: US)
  Receive Date: 20170405
  Receipt Date: 20170405
  Transmission Date: 20170830
  Serious: Yes (Hospitalization)
  Sender: FDA-Public Use
  Company Number: US-KADMON PHARMACEUTICALS, LLC-KAD-201704-00386

PATIENT
  Age: 59 Year
  Sex: Female

DRUGS (10)
  1. VIEKIRA PAK [Suspect]
     Active Substance: DASABUVIR\OMBITASVIR\PARITAPREVIR\RITONAVIR
     Indication: CHRONIC HEPATITIS C
     Dosage: TABLET
     Route: 048
     Dates: start: 20170320, end: 20170320
  2. XALATAN [Concomitant]
     Active Substance: LATANOPROST
  3. MIRTAZAPINE. [Concomitant]
     Active Substance: MIRTAZAPINE
  4. XOPENEX [Concomitant]
     Active Substance: LEVALBUTEROL HYDROCHLORIDE
  5. LISINOPRIL. [Concomitant]
     Active Substance: LISINOPRIL
     Indication: HYPERTENSION
  6. ADALAT [Concomitant]
     Active Substance: NIFEDIPINE
  7. PRINIVIL [Concomitant]
     Active Substance: LISINOPRIL
  8. RIBAVIRIN 200 MG TABLETS [Suspect]
     Active Substance: RIBAVIRIN
     Indication: CHRONIC HEPATITIS C
     Route: 048
     Dates: start: 20170320, end: 20170320
  9. COSOPT [Concomitant]
     Active Substance: DORZOLAMIDE HYDROCHLORIDE\TIMOLOL MALEATE
  10. BUPROPION. [Concomitant]
     Active Substance: BUPROPION

REACTIONS (8)
  - Abdominal distension [Not Recovered/Not Resolved]
  - Abdominal adhesions [Recovered/Resolved]
  - Ascites [Not Recovered/Not Resolved]
  - Pleural effusion [Not Recovered/Not Resolved]
  - Intestinal obstruction [Recovered/Resolved]
  - Colon gangrene [Recovering/Resolving]
  - Abdominal pain [Not Recovered/Not Resolved]
  - Pneumonia [Not Recovered/Not Resolved]

NARRATIVE: CASE EVENT DATE: 201703
